FAERS Safety Report 7406263-2 (Version None)
Quarter: 2011Q2

REPORT INFORMATION
  Report Type: 
  Country: None (occurrence: None)
  Receive Date: 20110411
  Receipt Date: 20110331
  Transmission Date: 20111010
  Serious: Yes (Other)
  Sender: FDA-Public Use
  Company Number: US-JNJFOC-20110403111

PATIENT
  Sex: Female

DRUGS (4)
  1. MONISTAT 1 UNSPECIFIED [Suspect]
     Route: 061
  2. MONISTAT 1 UNSPECIFIED [Suspect]
     Route: 067
  3. MONISTAT 1 UNSPECIFIED [Suspect]
     Indication: FUNGAL INFECTION
     Route: 067
  4. MONISTAT 1 UNSPECIFIED [Suspect]
     Dosage: 100MG TUBE 2% STRENGTH EXTERNAL CREAM
     Route: 061

REACTIONS (6)
  - VULVOVAGINAL SWELLING [None]
  - VULVOVAGINAL PAIN [None]
  - CHEMICAL INJURY [None]
  - VULVOVAGINAL BURNING SENSATION [None]
  - VULVOVAGINAL PRURITUS [None]
  - PRODUCT QUALITY ISSUE [None]
